FAERS Safety Report 9184448 (Version 3)
Quarter: 2013Q3

REPORT INFORMATION
  Report Type: Report from Study
  Country: JP (occurrence: JP)
  Receive Date: 20121031
  Receipt Date: 20130906
  Transmission Date: 20140515
  Serious: Yes (Other)
  Sender: FDA-Public Use
  Company Number: JP-VERTEX PHARMACEUTICAL INC.-2012-023770

PATIENT
  Age: 65 Year
  Sex: Female

DRUGS (11)
  1. VX-950 (TELAPREVIR) [Suspect]
     Indication: CHRONIC HEPATITIS C
     Dosage: 1500 MG, QD
     Route: 048
     Dates: start: 20120730, end: 20120912
  2. VX-950 (TELAPREVIR) [Suspect]
     Dosage: 1000 MG, QD
     Route: 048
     Dates: start: 20120912, end: 20120925
  3. VX-950 (TELAPREVIR) [Suspect]
     Dosage: 500 MG, QD
     Route: 048
     Dates: start: 20120926, end: 20121024
  4. REBETOL [Suspect]
     Indication: CHRONIC HEPATITIS C
     Dosage: 600 MG, QD
     Route: 048
     Dates: start: 20120730, end: 20120810
  5. REBETOL [Suspect]
     Dosage: 200 MG, QD
     Route: 048
     Dates: start: 20120811
  6. PEGINTRON [Suspect]
     Indication: CHRONIC HEPATITIS C
     Dosage: 1.5 ?G/KG, QW
     Route: 058
     Dates: start: 20120730
  7. PEGINTRON [Suspect]
     Dosage: 80 ?G, QW
     Route: 058
     Dates: end: 20120918
  8. PEGINTRON [Suspect]
     Dosage: 50 ?G, QW
     Route: 058
     Dates: start: 20120919, end: 20120925
  9. PEGINTRON [Suspect]
     Dosage: 40 ?G, QW
     Route: 058
     Dates: start: 20120926
  10. JUZENTAIHOTO [Concomitant]
     Dosage: 7.5 G, QD
     Route: 048
     Dates: start: 20120730
  11. FAMOTIDINE [Concomitant]
     Dosage: 20 MG, QD
     Route: 048
     Dates: start: 20120730

REACTIONS (2)
  - Renal impairment [Recovered/Resolved]
  - Haemoglobin decreased [Recovered/Resolved]
